FAERS Safety Report 14348494 (Version 1)
Quarter: 2018Q1

REPORT INFORMATION
  Report Type: Spontaneous
  Country: US (occurrence: US)
  Receive Date: 20180103
  Receipt Date: 20180103
  Transmission Date: 20180509
  Serious: Yes (Death, Other)
  Sender: FDA-Public Use
  Company Number: US-009507513-1801USA000504

PATIENT
  Age: 19 Year
  Sex: Male

DRUGS (12)
  1. PRINIVIL [Suspect]
     Active Substance: LISINOPRIL
     Route: 048
  2. LORAZEPAM. [Suspect]
     Active Substance: LORAZEPAM
  3. FLUPHENAZINE [Suspect]
     Active Substance: FLUPHENAZINE
  4. OXCARBAZEPINE. [Suspect]
     Active Substance: OXCARBAZEPINE
  5. VALPROIC ACID. [Suspect]
     Active Substance: VALPROIC ACID
     Dosage: EXTENDED RELEASE
  6. QUETIAPINE FUMARATE. [Suspect]
     Active Substance: QUETIAPINE FUMARATE
  7. HYDROCHLOROTHIAZIDE. [Suspect]
     Active Substance: HYDROCHLOROTHIAZIDE
  8. OMEPRAZOLE. [Suspect]
     Active Substance: OMEPRAZOLE
  9. LEVETIRACETAM. [Suspect]
     Active Substance: LEVETIRACETAM
  10. OXYCODONE [Suspect]
     Active Substance: OXYCODONE
  11. BENZTROPINE MESYLATE. [Suspect]
     Active Substance: BENZTROPINE MESYLATE
  12. SERTRALINE HYDROCHLORIDE. [Suspect]
     Active Substance: SERTRALINE HYDROCHLORIDE

REACTIONS (1)
  - Death [Fatal]
